FAERS Safety Report 6670451-3 (Version None)
Quarter: 2010Q2

REPORT INFORMATION
  Report Type: 
  Country: None (occurrence: None)
  Receive Date: 20100407
  Receipt Date: 20100329
  Transmission Date: 20101027
  Serious: No
  Sender: FDA-Public Use
  Company Number: US-BIOGENIDEC-2010BI002446

PATIENT
  Sex: Male

DRUGS (1)
  1. TYSABRI [Suspect]
     Indication: MULTIPLE SCLEROSIS
     Route: 042
     Dates: start: 20080812

REACTIONS (7)
  - ACCIDENT AT WORK [None]
  - BURNOUT SYNDROME [None]
  - FATIGUE [None]
  - ROTATOR CUFF SYNDROME [None]
  - SHOULDER OPERATION [None]
  - STRESS [None]
  - SURGERY [None]
